FAERS Safety Report 8779441 (Version 2)
Quarter: 2012Q4

REPORT INFORMATION
  Report Type: 
  Country: DE (occurrence: BR)
  Receive Date: 20120912
  Receipt Date: 20120917
  Transmission Date: 20130627
  Serious: Yes (Other)
  Sender: FDA-Public Use
  Company Number: 2012SP002544

PATIENT
  Age: 45 Year
  Sex: Female
  Weight: 65 kg

DRUGS (2)
  1. OMNARIS NASAL SPRAY [Suspect]
     Indication: RHINITIS ALLERGIC
     Route: 045
     Dates: start: 20120807, end: 20120905
  2. PREDNISONE [Concomitant]
     Indication: RHINITIS ALLERGIC
     Route: 048
     Dates: start: 20120807, end: 20120814

REACTIONS (6)
  - Oropharyngeal pain [Recovered/Resolved]
  - Dysgeusia [Recovered/Resolved]
  - Overdose [Recovered/Resolved]
  - Cough [Recovered/Resolved]
  - Nasopharyngitis [Recovered/Resolved]
  - Epistaxis [Recovered/Resolved]
